FAERS Safety Report 5281578-5 (Version None)
Quarter: 2007Q1

REPORT INFORMATION
  Report Type: 
  Country: None (occurrence: None)
  Receive Date: 20061222
  Receipt Date: 20060515
  Transmission Date: 20070707
  Serious: Yes (Hospitalization)
  Sender: FDA-Public Use
  Company Number: DSA_28200_2006

PATIENT
  Age: 72 Year
  Sex: Male

DRUGS (14)
  1. DILTIAZEM [Suspect]
     Indication: ATRIAL FLUTTER
     Dosage: 20 MG ONCE PU
     Dates: start: 20060224, end: 20060224
  2. DILTIAZEM [Suspect]
     Indication: ATRIAL FLUTTER
     Dosage: 10 MG CON IV
     Route: 042
     Dates: start: 20060224, end: 20060201
  3. TOPROL-XL [Suspect]
     Dosage: DF
  4. AMIODARONE HCL [Concomitant]
  5. LIPITOR [Concomitant]
  6. DIOVAN [Concomitant]
  7. FLOMAX [Concomitant]
  8. FENTANYL [Concomitant]
  9. SPIRIVA [Concomitant]
  10. LOPRESSOR [Concomitant]
  11. BACTROBAN [Concomitant]
  12. PROTONIX [Concomitant]
  13. ZOLOFT [Concomitant]
  14. LIORESAL [Concomitant]

REACTIONS (1)
  - BRADYCARDIA [None]
